FAERS Safety Report 21328810 (Version 1)
Quarter: 2022Q3

REPORT INFORMATION
  Report Type: Spontaneous
  Country: JP (occurrence: JP)
  Receive Date: 20220913
  Receipt Date: 20220913
  Transmission Date: 20221026
  Serious: Yes (Hospitalization)
  Sender: FDA-Public Use
  Company Number: JP-PFIZER INC-202201148337

PATIENT
  Age: 79 Year
  Sex: Male
  Weight: 53 kg

DRUGS (7)
  1. RHEUMATREX [Suspect]
     Active Substance: METHOTREXATE SODIUM
     Indication: Rheumatoid arthritis
     Dosage: 6 MG, WEEKLY (4 MG IN THE MORNING, 2 MG IN THE EVENING)
     Route: 048
     Dates: start: 20080801, end: 20220729
  2. COVID-19 VACCINE NOS [Suspect]
     Active Substance: COVID-19 VACCINE NOS
     Indication: COVID-19 immunisation
     Dosage: DOSE NUMBER UNKNOWN, SINGLE
     Dates: start: 20220727, end: 20220727
  3. AMLODIPINE BESYLATE [Suspect]
     Active Substance: AMLODIPINE BESYLATE
     Indication: Hypertension
     Dosage: 5 MG, 1X/DAY
     Route: 048
     Dates: start: 20081226, end: 20220729
  4. LOXOPROFEN [Concomitant]
     Active Substance: LOXOPROFEN
     Indication: Rheumatoid arthritis
     Dosage: 60 MG, AS NEEDED (WHEN PAIN DEVELOPED)
     Route: 048
     Dates: start: 200806, end: 20220729
  5. TENELIA OD [Concomitant]
     Indication: Diabetes mellitus
     Dosage: 20 MG, 1X/DAY
     Route: 048
     Dates: start: 20170913, end: 20220729
  6. FOLIC ACID [Concomitant]
     Active Substance: FOLIC ACID
     Indication: Rheumatoid arthritis
     Dosage: 5 MG, WEEKLY
     Route: 048
     Dates: start: 20080801, end: 20220729
  7. SHIGMABITAN [Concomitant]
     Indication: Hypovitaminosis
     Dosage: 3 DF, DAILY
     Route: 048
     Dates: start: 20220720, end: 20220729

REACTIONS (1)
  - Acute generalised exanthematous pustulosis [Unknown]

NARRATIVE: CASE EVENT DATE: 20220726
